FAERS Safety Report 23609806 (Version 2)
Quarter: 2024Q3

REPORT INFORMATION
  Report Type: Spontaneous
  Country: NZ (occurrence: NZ)
  Receive Date: 20240308
  Receipt Date: 20240709
  Transmission Date: 20241017
  Serious: Yes (Hospitalization, Other)
  Sender: BRISTOL MYERS SQUIBB
  Company Number: NZ-BRISTOL-MYERS SQUIBB COMPANY-2024-035209

PATIENT
  Age: 73 Year
  Sex: Male

DRUGS (1)
  1. REVLIMID [Suspect]
     Active Substance: LENALIDOMIDE
     Indication: Plasma cell myeloma

REACTIONS (4)
  - Intervertebral disc injury [Unknown]
  - Thrombosis [Unknown]
  - Fatigue [Unknown]
  - Post procedural complication [Unknown]
